FAERS Safety Report 5624496-2 (Version None)
Quarter: 2008Q1

REPORT INFORMATION
  Report Type: 
  Country: None (occurrence: None)
  Receive Date: 20080208
  Receipt Date: 20080201
  Transmission Date: 20080703
  Serious: Yes (Hospitalization)
  Sender: FDA-Public Use
  Company Number: 163-21880-08020115

PATIENT
  Age: 65 Year
  Sex: Female

DRUGS (3)
  1. REVLIMID [Suspect]
     Indication: MULTIPLE MYELOMA
     Dosage: 10 MG, QD X 21 DAYS, ORAL
     Route: 048
     Dates: start: 20080117, end: 20080127
  2. PROZAC [Concomitant]
  3. DEXAMETHASONE TAB [Concomitant]

REACTIONS (5)
  - BLOOD PRESSURE INCREASED [None]
  - DIZZINESS [None]
  - GAIT DISTURBANCE [None]
  - NERVOUSNESS [None]
  - PRURITUS [None]
